FAERS Safety Report 24561364 (Version 2)
Quarter: 2024Q4

REPORT INFORMATION
  Report Type: Spontaneous
  Country: US (occurrence: US)
  Receive Date: 20241029
  Receipt Date: 20241202
  Transmission Date: 20250114
  Serious: No
  Sender: PFIZER
  Company Number: US-PFIZER INC-202400196271

PATIENT
  Age: 49 Year
  Sex: Female

DRUGS (3)
  1. TIVDAK [Suspect]
     Active Substance: TISOTUMAB VEDOTIN-TFTV
     Dosage: 1 40MG DOSE ADMINISTERED EVERY 3 WEEKS
     Route: 042
  2. TIVDAK [Suspect]
     Active Substance: TISOTUMAB VEDOTIN-TFTV
     Dosage: 120MG EVERY 21 DAYS
  3. TIVDAK [Suspect]
     Active Substance: TISOTUMAB VEDOTIN-TFTV
     Dosage: 120 MG, EVERY 3 WEEKS
     Route: 042
     Dates: start: 20240628, end: 20240926

REACTIONS (4)
  - Neoplasm progression [Unknown]
  - Off label use [Unknown]
  - Off label use [Unknown]
  - Product dose omission issue [Unknown]

NARRATIVE: CASE EVENT DATE: 20240618
